FAERS Safety Report 5201759-6 (Version None)
Quarter: 2007Q1

REPORT INFORMATION
  Report Type: 
  Country: None (occurrence: None)
  Receive Date: 20070104
  Receipt Date: 20061220
  Transmission Date: 20070707
  Serious: Yes (Death, Life-Threatening, Hospitalization)
  Sender: FDA-Public Use
  Company Number: A-JP2006-13454

PATIENT
  Age: 70 Year
  Sex: Female
  Weight: 43 kg

DRUGS (15)
  1. TRACLEER [Suspect]
     Indication: PULMONARY HYPERTENSION
     Dosage: 62.5MG, BID; , 62.5 MG, QD, ORAL
     Route: 048
     Dates: start: 20060925, end: 20060918
  2. TRACLEER [Suspect]
     Indication: PULMONARY HYPERTENSION
     Dosage: 62.5MG, BID; , 62.5 MG, QD, ORAL
     Route: 048
     Dates: start: 20060919, end: 20061031
  3. OLMESARTAN (OLMESARTAN) [Suspect]
     Dates: start: 20061017, end: 20061104
  4. PREDNISOLONE [Suspect]
     Dates: start: 20060829
  5. SARPOGRELATE (SARPOGRELATE) [Suspect]
     Dates: start: 20060829, end: 20061104
  6. RABEPRAZOLE SODIUM [Suspect]
     Dates: start: 20060824, end: 20061104
  7. ZOLPIDEM TARTRATE [Suspect]
     Dates: start: 20061002, end: 20061104
  8. ASPIRIN [Concomitant]
  9. AMLODIPIN (AMLODIPINE BESILATE) [Concomitant]
  10. BERAPROST SODIUM [Concomitant]
  11. LEVOTHYROXINE SODIUM [Concomitant]
  12. ASPARTATE POTASSIUM [Concomitant]
  13. LOXOPROFEN [Concomitant]
  14. TEPRENONE [Concomitant]
  15. TRICHLORMETHIAZIDE [Concomitant]

REACTIONS (19)
  - ACIDOSIS [None]
  - ATRIAL FIBRILLATION [None]
  - CARDIAC FAILURE CONGESTIVE [None]
  - CARDIOVERSION [None]
  - DISSEMINATED INTRAVASCULAR COAGULATION [None]
  - DRUG INTERACTION [None]
  - GASTROINTESTINAL HAEMORRHAGE [None]
  - HAEMODIALYSIS [None]
  - HEPATIC CONGESTION [None]
  - HEPATIC FAILURE [None]
  - HEPATITIS [None]
  - INTUBATION [None]
  - MELAENA [None]
  - MULTI-ORGAN FAILURE [None]
  - OLIGURIA [None]
  - PULMONARY OEDEMA [None]
  - RENAL FAILURE [None]
  - SEPTIC SHOCK [None]
  - TACHYCARDIA [None]
